FAERS Safety Report 24760716 (Version 1)
Quarter: 2024Q4

REPORT INFORMATION
  Report Type: Spontaneous
  Country: FR (occurrence: FR)
  Receive Date: 20241220
  Receipt Date: 20241220
  Transmission Date: 20250115
  Serious: Yes (Other)
  Sender: PFIZER
  Company Number: None

PATIENT
  Age: 60 Year
  Sex: Male

DRUGS (7)
  1. CARBOPLATIN [Suspect]
     Active Substance: CARBOPLATIN
     Indication: Pleural mesothelioma malignant
     Dosage: UNK
     Route: 042
     Dates: start: 202409
  2. PEMETREXED [Suspect]
     Active Substance: PEMETREXED
     Indication: Pleural mesothelioma malignant
     Dosage: UNK
     Route: 042
     Dates: start: 202409
  3. PRIMPERAN [Suspect]
     Active Substance: METOCLOPRAMIDE HYDROCHLORIDE
     Indication: Prophylaxis of nausea and vomiting
     Dosage: 10 MG, 3X/DAY IF NEEDED FROM D4 TO D7
     Route: 048
     Dates: start: 202409, end: 202411
  4. VOGALENE [Suspect]
     Active Substance: METOPIMAZINE
     Indication: Prophylaxis of nausea and vomiting
     Dosage: 7.5 MG 1 TO 3 TIMES DAILY IF NEEDED FROM D4 TO D7
     Route: 048
     Dates: start: 202409, end: 202411
  5. AVASTIN [Suspect]
     Active Substance: BEVACIZUMAB
     Indication: Pleural mesothelioma malignant
     Dosage: UNK
     Route: 042
     Dates: start: 202409
  6. APREPITANT [Suspect]
     Active Substance: APREPITANT
     Indication: Prophylaxis of nausea and vomiting
     Dosage: 285 MG, CYCLIC
     Route: 048
     Dates: start: 202409
  7. PREDNISOLONE ACETATE [Concomitant]
     Active Substance: PREDNISOLONE ACETATE
     Dosage: UNK

REACTIONS (4)
  - Pain in jaw [Recovering/Resolving]
  - Trismus [Recovered/Resolved]
  - Oropharyngeal pain [Recovering/Resolving]
  - Off label use [Unknown]

NARRATIVE: CASE EVENT DATE: 20240101
